FAERS Safety Report 12310529 (Version 1)
Quarter: 2016Q2

REPORT INFORMATION
  Report Type: Spontaneous
  Country: GB (occurrence: None)
  Receive Date: 20160426
  Receipt Date: 20160426
  Transmission Date: 20160815
  Serious: Yes (Hospitalization)
  Sender: FDA-Public Use
  Company Number: GB2016K1635SPO

PATIENT
  Age: 84 Year
  Sex: Female

DRUGS (12)
  1. FRUSEMIDE (FUROSEMIDE) [Suspect]
     Active Substance: FUROSEMIDE
     Route: 048
  2. FOLIC ACID. [Concomitant]
     Active Substance: FOLIC ACID
  3. WARFARIN [Concomitant]
     Active Substance: WARFARIN
  4. LANSOPRAZOLE GENERIC (LANSOPRAZOLE) UNKNOWN [Suspect]
     Active Substance: LANSOPRAZOLE
     Route: 048
  5. FERROUS SULPHATE (IRON) [Concomitant]
  6. GLICLAZIDE [Concomitant]
     Active Substance: GLICLAZIDE
  7. SALBUTAMOL [Concomitant]
     Active Substance: ALBUTEROL
  8. AMLODIPINE [Concomitant]
     Active Substance: AMLODIPINE BESYLATE
  9. CLENIL MODULITE (BECLOMETASONE DIPROPIONATE) [Concomitant]
  10. DIGOXIN. [Concomitant]
     Active Substance: DIGOXIN
  11. DOXAZOSIN [Concomitant]
     Active Substance: DOXAZOSIN\DOXAZOSIN MESYLATE
  12. LOSARTAN. [Concomitant]
     Active Substance: LOSARTAN

REACTIONS (2)
  - Hyponatraemia [None]
  - Fall [None]

NARRATIVE: CASE EVENT DATE: 20160331
